FAERS Safety Report 4546069-5 (Version None)
Quarter: 2005Q1

REPORT INFORMATION
  Report Type: 
  Country: None (occurrence: None)
  Receive Date: 20050103
  Receipt Date: 20041223
  Transmission Date: 20050727
  Serious: Yes (Hospitalization)
  Sender: FDA-Public Use
  Company Number: 2004118924

PATIENT
  Sex: Male
  Weight: 106.5953 kg

DRUGS (5)
  1. SUDAFED 12 HOUR [Suspect]
     Indication: NASAL CONGESTION
     Dosage: BID AS NEEDED, ORAL
     Route: 048
     Dates: end: 19990101
  2. METOPROLOL TARTRATE [Concomitant]
  3. CARBAMAZEPINE [Concomitant]
  4. METFORMIN HCL [Concomitant]
  5. GLYBURIDE [Concomitant]

REACTIONS (1)
  - CARDIAC OPERATION [None]
